FAERS Safety Report 6019053-2 (Version None)
Quarter: 2008Q4

REPORT INFORMATION
  Report Type: 
  Country: None (occurrence: None)
  Receive Date: 20081224
  Receipt Date: 20081208
  Transmission Date: 20090506
  Serious: Yes (Life-Threatening, Hospitalization)
  Sender: FDA-Public Use
  Company Number: JP-PFIZER INC-2008096875

PATIENT
  Sex: Male

DRUGS (6)
  1. SULPERAZON [Suspect]
     Indication: BRONCHITIS
     Dosage: 2 G, 1X/DAY
     Route: 042
     Dates: start: 20081022, end: 20081022
  2. SULPERAZON [Suspect]
     Indication: PERITONSILLITIS
  3. ISEPACIN [Suspect]
     Indication: BRONCHITIS
     Dosage: 400 MG, 1X/DAY
     Route: 042
     Dates: start: 20080822, end: 20080822
  4. ISEPACIN [Suspect]
     Indication: PERITONSILLITIS
     Dosage: 400 MG, 1X/DAY
     Route: 042
     Dates: start: 20081022, end: 20081022
  5. ORGADRONE [Suspect]
     Indication: BRONCHITIS
     Dosage: 3.8 MG, 1X/DAY
     Route: 042
     Dates: start: 20080819, end: 20080820
  6. ORGADRONE [Suspect]
     Dosage: 3.8 MG, 1X/DAY
     Dates: start: 20081022, end: 20081022

REACTIONS (1)
  - ANAPHYLACTIC SHOCK [None]
